FAERS Safety Report 7344677-X (Version None)
Quarter: 2011Q1

REPORT INFORMATION
  Report Type: 
  Country: None (occurrence: None)
  Receive Date: 20110310
  Receipt Date: 20110301
  Transmission Date: 20110831
  Serious: Yes (Hospitalization, Disabling, Other)
  Sender: FDA-Public Use
  Company Number: US-MERCK-1010USA01319

PATIENT
  Age: 55 Year
  Sex: Female

DRUGS (2)
  1. ALENDRONATE SODIUM [Suspect]
     Route: 065
     Dates: start: 20080701, end: 20090701
  2. FOSAMAX [Suspect]
     Indication: OSTEOPOROSIS
     Route: 048
     Dates: start: 20020101, end: 20090101

REACTIONS (8)
  - BONE DENSITY DECREASED [None]
  - HYPERTENSION [None]
  - HORMONE LEVEL ABNORMAL [None]
  - PAIN IN EXTREMITY [None]
  - FEMUR FRACTURE [None]
  - STRESS FRACTURE [None]
  - HYPOTHYROIDISM [None]
  - OSTEOPOROSIS [None]
